FAERS Safety Report 7306722-7 (Version None)
Quarter: 2011Q1

REPORT INFORMATION
  Report Type: 
  Country: None (occurrence: None)
  Receive Date: 20110222
  Receipt Date: 20110207
  Transmission Date: 20110831
  Serious: Yes (Hospitalization)
  Sender: FDA-Public Use
  Company Number: 2007BI016586

PATIENT
  Age: 63 Year
  Sex: Female
  Weight: 49 kg

DRUGS (3)
  1. CARAFATE [Concomitant]
     Indication: ULCER
  2. AVONEX [Suspect]
     Indication: MULTIPLE SCLEROSIS
     Route: 030
     Dates: start: 19981001, end: 20030101
  3. AVONEX [Suspect]
     Route: 030
     Dates: start: 20030101, end: 20091103

REACTIONS (7)
  - MUSCULAR WEAKNESS [None]
  - ARTHRITIS [None]
  - BURSITIS [None]
  - SPINAL COLUMN INJURY [None]
  - BACK PAIN [None]
  - ARTHRALGIA [None]
  - FALL [None]
